FAERS Safety Report 17160932 (Version 1)
Quarter: 2019Q4

REPORT INFORMATION
  Report Type: Spontaneous
  Country: FR (occurrence: FR)
  Receive Date: 20191216
  Receipt Date: 20191216
  Transmission Date: 20200122
  Serious: Yes (Hospitalization)
  Sender: FDA-Public Use
  Company Number: FR-BAUSCH-BL-2019-064768

PATIENT
  Age: 28 Year
  Sex: Female

DRUGS (3)
  1. EFFERALGAN CODEINE [Suspect]
     Active Substance: ACETAMINOPHEN\CODEINE PHOSPHATE
     Indication: DRUG USE DISORDER
     Dosage: COMPRESSED EFFERVESCENT BREAKABLE
     Route: 048
     Dates: start: 2018
  2. TRAMADOL BASE [Suspect]
     Active Substance: TRAMADOL
     Indication: DRUG USE DISORDER
     Dosage: AS REQUIRED
     Route: 048
     Dates: start: 2018
  3. DIAZEPAM. [Suspect]
     Active Substance: DIAZEPAM
     Indication: DRUG USE DISORDER
     Route: 048
     Dates: start: 2018

REACTIONS (2)
  - Condition aggravated [Not Recovered/Not Resolved]
  - Drug use disorder [Not Recovered/Not Resolved]

NARRATIVE: CASE EVENT DATE: 2018
